FAERS Safety Report 5369184-5 (Version None)
Quarter: 2007Q2

REPORT INFORMATION
  Report Type: 
  Country: None (occurrence: None)
  Receive Date: 20070625
  Receipt Date: 20070615
  Transmission Date: 20071010
  Serious: Yes (Hospitalization)
  Sender: FDA-Public Use
  Company Number: US-ROCHE-502756

PATIENT
  Age: 51 Year
  Sex: Female

DRUGS (7)
  1. LARIAM [Suspect]
     Indication: MALARIA PROPHYLAXIS
     Dosage: REPORTED AS TAKEN 5 WEEKLY DOSES
     Route: 048
     Dates: start: 20061221, end: 20070124
  2. RILUTEK [Concomitant]
  3. VITAMIN E [Concomitant]
  4. ASCORBIC ACID [Concomitant]
  5. VITAMINS NOS [Concomitant]
  6. COENZYME Q10 [Concomitant]
  7. ALPHA LIPOIC  ACID [Concomitant]

REACTIONS (2)
  - AMYOTROPHIC LATERAL SCLEROSIS [None]
  - PARANEOPLASTIC SYNDROME [None]
